FAERS Safety Report 22039450 (Version 3)
Quarter: 2023Q4

REPORT INFORMATION
  Report Type: Spontaneous
  Country: US (occurrence: US)
  Receive Date: 20230227
  Receipt Date: 20231026
  Transmission Date: 20240109
  Serious: No
  Sender: FDA-Public Use
  Company Number: US-BRISTOL-MYERS SQUIBB COMPANY-2023-027693

PATIENT
  Age: 75 Year
  Sex: Female

DRUGS (2)
  1. LENALIDOMIDE [Suspect]
     Active Substance: LENALIDOMIDE
     Indication: Cardiac failure congestive
     Dosage: FREQUENCY: TAKE 1 CAPSULE BY MOUTH EVERY OTHER DAY FOR 21 DAYS EVERY 28 DAYS CYCLE.?TAKE 1 CAPSULE B
     Route: 048
     Dates: start: 20221028
  2. LENALIDOMIDE [Suspect]
     Active Substance: LENALIDOMIDE
     Dosage: FREQUENCY: TAKE 1 CAPSULE BY MOUTH EVERY OTHER DAY FOR 21 DAYS EVERY 28 DAYS CYCLE.
     Route: 048
     Dates: start: 20221028

REACTIONS (3)
  - Upper respiratory tract infection [Unknown]
  - Off label use [Unknown]
  - Lower respiratory tract infection [Recovered/Resolved]
